FAERS Safety Report 4579757-5 (Version None)
Quarter: 2005Q1

REPORT INFORMATION
  Report Type: 
  Country: None (occurrence: None)
  Receive Date: 20050210
  Receipt Date: 20041116
  Transmission Date: 20050727
  Serious: Yes (Hospitalization)
  Sender: FDA-Public Use
  Company Number: 2004SE04895

PATIENT
  Age: 53 Year
  Sex: Male

DRUGS (11)
  1. IRESSA [Suspect]
     Indication: PANCREATIC CARCINOMA
     Dosage: 45 MG DAILY; PO
     Route: 048
     Dates: start: 20040727, end: 20040824
  2. ZD1839 [Suspect]
     Indication: PANCREATIC CARCINOMA
     Dates: start: 20040727, end: 20040824
  3. DURAGESIC [Concomitant]
  4. ACETAMINOPHEN [Concomitant]
  5. MOVICOLON [Concomitant]
  6. SEVREDOL [Concomitant]
  7. COZAAR [Concomitant]
  8. CELEBREX [Concomitant]
  9. PANCREASE [Concomitant]
  10. CEDOCARD [Concomitant]
  11. NEBIVOLOL [Concomitant]

REACTIONS (12)
  - ABDOMINAL PAIN [None]
  - ASCITES [None]
  - ATELECTASIS [None]
  - CHANGE OF BOWEL HABIT [None]
  - CONDITION AGGRAVATED [None]
  - CONSTIPATION [None]
  - HYPERTENSION [None]
  - LUNG INFILTRATION [None]
  - PLEURAL EFFUSION [None]
  - PNEUMONIA [None]
  - PULMONARY EMBOLISM [None]
  - ULTRASOUND ABDOMEN ABNORMAL [None]
